FAERS Safety Report 5232305-9 (Version None)
Quarter: 2007Q1

REPORT INFORMATION
  Report Type: 
  Country: None (occurrence: None)
  Receive Date: 20070207
  Receipt Date: 20070201
  Transmission Date: 20070707
  Serious: Yes (Hospitalization)
  Sender: FDA-Public Use
  Company Number: US-JNJFOC-20061204811

PATIENT
  Sex: Female
  Weight: 55.34 kg

DRUGS (4)
  1. RAZADYNE [Suspect]
     Indication: MEMORY IMPAIRMENT
     Route: 048
  2. RAZADYNE ER [Suspect]
     Indication: MEMORY IMPAIRMENT
     Route: 048
  3. PREDNISONE [Concomitant]
     Indication: SINUS DISORDER
  4. AMBIEN [Concomitant]
     Indication: SLEEP DISORDER

REACTIONS (3)
  - ANKLE FRACTURE [None]
  - CONDITION AGGRAVATED [None]
  - INSOMNIA [None]
